FAERS Safety Report 5491335-2 (Version None)
Quarter: 2007Q4

REPORT INFORMATION
  Report Type: 
  Country: None (occurrence: None)
  Receive Date: 20071017
  Receipt Date: 20071004
  Transmission Date: 20080405
  Serious: Yes (Hospitalization, Other)
  Sender: FDA-Public Use
  Company Number: 2007BI021024

PATIENT
  Age: 28 Year
  Sex: Male

DRUGS (9)
  1. NATALIZUMAB (NATALIZUMAB) [Suspect]
     Indication: MULTIPLE SCLEROSIS
     Dosage: 300 MG;QM;IV
     Route: 042
     Dates: start: 20070301, end: 20070613
  2. RISPERDAL [Concomitant]
  3. GABAPENTIN [Concomitant]
  4. FOLIC ACID [Concomitant]
  5. BETASERON [Concomitant]
  6. MITOXANTRONE [Concomitant]
  7. COPAXONE [Concomitant]
  8. AZATHIOPRINE [Concomitant]
  9. REBIF [Concomitant]

REACTIONS (4)
  - DISEASE PROGRESSION [None]
  - PNEUMONIA [None]
  - PROGRESSIVE RELAPSING MULTIPLE SCLEROSIS [None]
  - SCHIZOPHRENIA [None]
